FAERS Safety Report 18026264 (Version 10)
Quarter: 2022Q1

REPORT INFORMATION
  Report Type: Report from Study
  Country: US (occurrence: US)
  Receive Date: 20200715
  Receipt Date: 20220302
  Transmission Date: 20220423
  Serious: Yes (Hospitalization, Other)
  Sender: FDA-Public Use
  Company Number: US-SHIRE-US202022278

PATIENT
  Sex: Female

DRUGS (2)
  1. VON WILLEBRAND FACTOR HUMAN [Suspect]
     Active Substance: VON WILLEBRAND FACTOR HUMAN
     Indication: Von Willebrand^s disease
     Dosage: UNK
     Route: 042
  2. VON WILLEBRAND FACTOR HUMAN [Suspect]
     Active Substance: VON WILLEBRAND FACTOR HUMAN
     Dosage: UNK
     Route: 042
     Dates: start: 2019

REACTIONS (12)
  - COVID-19 [Unknown]
  - Postpartum haemorrhage [Unknown]
  - Intermenstrual bleeding [Unknown]
  - Epistaxis [Unknown]
  - Pneumothorax [Unknown]
  - Exposure during pregnancy [Recovered/Resolved]
  - Cardiac disorder [Unknown]
  - Asthma [Unknown]
  - Labour complication [Unknown]
  - Oropharyngeal pain [Unknown]
  - Dyspnoea [Unknown]
  - Intentional product use issue [Unknown]
